FAERS Safety Report 12812672 (Version 1)
Quarter: 2016Q4

REPORT INFORMATION
  Report Type: Spontaneous
  Country: US (occurrence: US)
  Receive Date: 20161005
  Receipt Date: 20161005
  Transmission Date: 20170207
  Serious: No
  Sender: FDA-Public Use
  Company Number: US-ENDO PHARMACEUTICALS INC.-2016-003180

PATIENT
  Sex: Female
  Weight: 51.3 kg

DRUGS (7)
  1. LIMBREL [Concomitant]
     Active Substance: FLAVOCOXID
     Indication: RHEUMATOID ARTHRITIS
  2. GABAPENTIN. [Concomitant]
     Active Substance: GABAPENTIN
     Indication: NEURALGIA
  3. TESTOSTERONE CREAM [Concomitant]
     Active Substance: TESTOSTERONE
     Indication: NIGHT SWEATS
  4. CARISOPRODOL TABLETS 350MG [Suspect]
     Active Substance: CARISOPRODOL
     Indication: MUSCLE SPASMS
     Dosage: TWO TABLEST IN MORNING, GENERALLY TAKES THREE TABLES BEFORE AFTERNOON
     Route: 048
     Dates: start: 2014
  5. NABUMETONE. [Concomitant]
     Active Substance: NABUMETONE
     Indication: RHEUMATOID ARTHRITIS
  6. TESTOSTERONE ESTRADIOL AND PROGESTERONE [Concomitant]
     Indication: MENOPAUSE
  7. PLAQUENIL [Concomitant]
     Active Substance: HYDROXYCHLOROQUINE SULFATE
     Indication: RHEUMATOID ARTHRITIS

REACTIONS (6)
  - Muscle spasms [Unknown]
  - Peripheral coldness [Unknown]
  - Intervertebral disc space narrowing [Unknown]
  - Drug ineffective [Unknown]
  - Condition aggravated [Unknown]
  - Intentional product use issue [Unknown]

NARRATIVE: CASE EVENT DATE: 2015
